FAERS Safety Report 23441124 (Version 1)
Quarter: 2024Q1

REPORT INFORMATION
  Report Type: Spontaneous
  Country: PT (occurrence: PT)
  Receive Date: 20240125
  Receipt Date: 20240125
  Transmission Date: 20240410
  Serious: Yes (Hospitalization, Other)
  Sender: FDA-Public Use
  Company Number: PT-INFARMED-J202401-61

PATIENT
  Age: 77 Year
  Sex: Male

DRUGS (2)
  1. PIPERACILLIN SODIUM\TAZOBACTAM SODIUM [Suspect]
     Active Substance: PIPERACILLIN SODIUM\TAZOBACTAM SODIUM
     Indication: Cholangitis acute
     Dosage: 4.5 GRAM, 3 TIMES A DAY
     Route: 042
     Dates: start: 20230815, end: 20230825
  2. PAXLOVID [Suspect]
     Active Substance: NIRMATRELVIR\RITONAVIR
     Indication: COVID-19
     Dosage: 1 DOSAGE FORM (400 MG (300 MG DE NIRMATRELVIR + 100 MG DE RITONAVIR))
     Route: 048
     Dates: start: 20230821, end: 20230825

REACTIONS (1)
  - SJS-TEN overlap [Recovered/Resolved]

NARRATIVE: CASE EVENT DATE: 20230824
